FAERS Safety Report 6049301-4 (Version None)
Quarter: 2009Q1

REPORT INFORMATION
  Report Type: 
  Country: None (occurrence: None)
  Receive Date: 20090123
  Receipt Date: 20090114
  Transmission Date: 20090719
  Serious: Yes (Hospitalization)
  Sender: FDA-Public Use
  Company Number: PHHO2007MX02865

PATIENT
  Age: 43 Year
  Sex: Female

DRUGS (2)
  1. DIOVAN [Suspect]
     Indication: HYPERTENSION
     Dosage: 160 MG, QD
     Route: 048
     Dates: start: 20061101, end: 20070205
  2. DIOVAN [Suspect]
     Dosage: 160 MG DAILY
     Route: 048

REACTIONS (2)
  - CHOLELITHIASIS [None]
  - GALLBLADDER OPERATION [None]
